FAERS Safety Report 4502658-5 (Version None)
Quarter: 2004Q3

REPORT INFORMATION
  Report Type: 
  Country: None (occurrence: None)
  Receive Date: 20040928
  Receipt Date: 20040607
  Transmission Date: 20050211
  Serious: No
  Sender: FDA-Public Use
  Company Number: 04P-163-0262963-00

PATIENT
  Age: 40 Year
  Sex: Male
  Weight: 88.4514 kg

DRUGS (5)
  1. HUMIRA [Suspect]
     Indication: RHEUMATOID ARTHRITIS
     Dosage: 40 MG, 1 IN 2 WK
     Dates: start: 20040426
  2. LISINOPRIL [Concomitant]
  3. HYDROCHLOROTHIAZIDE [Concomitant]
  4. PANTOPRAZOLE [Concomitant]
  5. HYDROCODONE [Concomitant]

REACTIONS (2)
  - NASOPHARYNGITIS [None]
  - PRODUCTIVE COUGH [None]
